FAERS Safety Report 7742447-1 (Version None)
Quarter: 2011Q3

REPORT INFORMATION
  Report Type: 
  Country: None (occurrence: None)
  Receive Date: 20110912
  Receipt Date: 20110829
  Transmission Date: 20111222
  Serious: Yes (Life-Threatening, Hospitalization)
  Sender: FDA-Public Use
  Company Number: US-MYLANLABS-2011S1018323

PATIENT
  Age: 56 Year
  Sex: Female

DRUGS (5)
  1. POTASSIUM [Suspect]
     Indication: SUICIDE ATTEMPT
     Dosage: UNKNOWN QUANTITY OF 20 MEQ/L TABLETS; PRESCRIPTION FILLED 4 DAYS EARLIER WITH 120 TABLETS
     Route: 048
  2. LISINOPRIL [Suspect]
     Indication: SUICIDE ATTEMPT
     Dosage: UNKNOWN QUANTITY OF 10MG TABLETS; PRESCRIPTION FILLED 4 DAYS EARLIER WITH 60 TABLETS
     Route: 048
  3. LISINOPRIL [Suspect]
     Indication: OVERDOSE
     Dosage: UNKNOWN QUANTITY OF 10MG TABLETS; PRESCRIPTION FILLED 4 DAYS EARLIER WITH 60 TABLETS
     Route: 048
  4. POTASSIUM [Suspect]
     Indication: OVERDOSE
     Dosage: UNKNOWN QUANTITY OF 20 MEQ/L TABLETS; PRESCRIPTION FILLED 4 DAYS EARLIER WITH 120 TABLETS
     Route: 048
  5. FLUOXETINE [Concomitant]
     Route: 065

REACTIONS (6)
  - CARDIAC ARREST [None]
  - INTENTIONAL OVERDOSE [None]
  - BRADYCARDIA [None]
  - SUICIDE ATTEMPT [None]
  - HYPOTENSION [None]
  - HYPERKALAEMIA [None]
